FAERS Safety Report 15269533 (Version 1)
Quarter: 2018Q3

REPORT INFORMATION
  Report Type: Spontaneous
  Country: US (occurrence: US)
  Receive Date: 20180726
  Receipt Date: 20180726
  Transmission Date: 20181010
  Serious: Yes (Other)
  Sender: FDA-Public Use
  Company Number: None

PATIENT
  Age: 79 Year
  Sex: Male

DRUGS (2)
  1. ESBRIET [Suspect]
     Active Substance: PIRFENIDONE
     Indication: ASBESTOSIS
     Route: 048
     Dates: start: 20160730
  2. ESBRIET [Suspect]
     Active Substance: PIRFENIDONE
     Indication: PNEUMOCONIOSIS
     Route: 048
     Dates: start: 20160730

REACTIONS (2)
  - Dyspnoea [None]
  - Oxygen saturation decreased [None]

NARRATIVE: CASE EVENT DATE: 20180722
